FAERS Safety Report 10162253 (Version 2)
Quarter: 2014Q2

REPORT INFORMATION
  Report Type: Report from Study
  Country: US (occurrence: US)
  Receive Date: 20140509
  Receipt Date: 20140522
  Transmission Date: 20141212
  Serious: Yes (Death)
  Sender: FDA-Public Use
  Company Number: US-SA-2014SA058563

PATIENT
  Age: 62 Year
  Sex: Male
  Weight: 71.9 kg

DRUGS (2)
  1. CLOFARABINE [Suspect]
     Indication: ACUTE MYELOID LEUKAEMIA
     Dosage: TOTAL DOSE ADMINISTERED THIS COURSE: 190 MG
     Route: 065
     Dates: start: 20140415, end: 20140419
  2. CLOFARABINE [Suspect]
     Indication: ACUTE MYELOID LEUKAEMIA
     Dosage: OTAL DOSE ADMINISTERED WAS 190 MG
     Route: 065
     Dates: start: 20140326

REACTIONS (2)
  - Respiratory failure [Fatal]
  - Lung infection [Fatal]
